FAERS Safety Report 12983065 (Version 1)
Quarter: 2016Q4

REPORT INFORMATION
  Report Type: Spontaneous
  Country: US (occurrence: US)
  Receive Date: 20161129
  Receipt Date: 20161129
  Transmission Date: 20170207
  Serious: No
  Sender: FDA-Public Use
  Company Number: US-MALLINCKRODT-T201602641

PATIENT
  Age: 68 Year
  Sex: Female
  Weight: 73 kg

DRUGS (4)
  1. LEXAPRO [Suspect]
     Active Substance: ESCITALOPRAM OXALATE
     Dosage: 40 MG (UNKNOWN FREQUENCY)
     Route: 065
     Dates: start: 201605
  2. LEXAPRO [Suspect]
     Active Substance: ESCITALOPRAM OXALATE
     Indication: PRODUCT USED FOR UNKNOWN INDICATION
     Dosage: 30 MG (UNKNOWN FREQUENCY)
     Route: 065
     Dates: end: 201605
  3. FENTANYL. [Concomitant]
     Active Substance: FENTANYL
     Dosage: 37 MCG/HR (ONE 25 MCG/HR PLUS ONE 12 MCG/HR)
     Dates: end: 201605
  4. FENTANYL TRANSDERMAL SYSTEM [Suspect]
     Active Substance: FENTANYL
     Indication: PAIN
     Dosage: 50 MCG/ML, ONE PATCH EVERY 72 HOURS
     Route: 062

REACTIONS (3)
  - Drug ineffective [Unknown]
  - Weight increased [Unknown]
  - Pain [Unknown]

NARRATIVE: CASE EVENT DATE: 201605
